FAERS Safety Report 24619118 (Version 1)
Quarter: 2024Q4

REPORT INFORMATION
  Report Type: Report from Study
  Country: DE (occurrence: DE)
  Receive Date: 20241114
  Receipt Date: 20241114
  Transmission Date: 20250114
  Serious: No
  Sender: ROCHE
  Company Number: DE-ML42393-1001-040-4_0

PATIENT
  Age: 25 Year
  Sex: Female

DRUGS (16)
  1. OCRELIZUMAB [Suspect]
     Active Substance: OCRELIZUMAB
     Indication: Relapsing multiple sclerosis
     Dosage: DOSE FREQUENCY: ONCE
     Route: 042
     Dates: start: 20231017
  2. OCRELIZUMAB [Suspect]
     Active Substance: OCRELIZUMAB
     Dosage: DOSE FREQUENCY: ONCE
     Route: 042
     Dates: start: 20240415
  3. ISONIAZID\PYRIDOXINE HYDROCHLORIDE [Concomitant]
     Active Substance: ISONIAZID\PYRIDOXINE HYDROCHLORIDE
     Dosage: DOSE: 300?DOSE FREQUENCY: QD (EVERY DAY)
     Route: 048
     Dates: start: 20230824, end: 202405
  4. PREGABALIN [Concomitant]
     Active Substance: PREGABALIN
     Dosage: DOSE: 75?DOSE FREQUENCY: PRN (AS NEEDED)
     Route: 048
     Dates: start: 20230824, end: 202312
  5. METHIMAZOLE [Concomitant]
     Active Substance: METHIMAZOLE
     Dosage: DOSE: 20?DOSE FREQUENCY: QD (EVERY DAY)
     Route: 048
     Dates: start: 202307, end: 202309
  6. METHIMAZOLE [Concomitant]
     Active Substance: METHIMAZOLE
     Dosage: DOSE: 2,5 DECREASING?DOSE FREQUENCY: QD (EVERY DAY)
     Route: 048
     Dates: start: 2023
  7. Belara contraceptive pill [Concomitant]
     Indication: Prophylaxis
     Dosage: DOSE: UNKNOWN?DOSE FREQUENCY: QD (EVERY DAY)
     Route: 048
     Dates: start: 2015
  8. CHOLECALCIFEROL [Concomitant]
     Active Substance: CHOLECALCIFEROL
     Indication: Prophylaxis
     Dosage: DOSE: 20000?DOSE FREQUENCY: QS (EVERY WEEK)
     Route: 048
     Dates: start: 20240129
  9. PREDNISOLONE [Concomitant]
     Active Substance: PREDNISOLONE
     Indication: Prophylaxis
     Dosage: DOSE FREQUENCY: ONCE
     Route: 042
     Dates: start: 20231017, end: 20231017
  10. PREDNISOLONE [Concomitant]
     Active Substance: PREDNISOLONE
     Dosage: DOSE FREQUENCY: ONCE
     Route: 042
     Dates: start: 20231030, end: 20231030
  11. PREDNISOLONE [Concomitant]
     Active Substance: PREDNISOLONE
     Dosage: DOSE FREQUENCY: ONCE
     Route: 042
     Dates: start: 20240415, end: 20240415
  12. PREDNISOLONE [Concomitant]
     Active Substance: PREDNISOLONE
     Dosage: DOSE FREQUENCY: ONCE
     Route: 042
     Dates: start: 20241107, end: 20241107
  13. EBASTINE [Concomitant]
     Active Substance: EBASTINE
     Indication: Prophylaxis
     Dosage: DOSE FREQUENCY: 2 TIMES A DAY FOR 3 DAYS, START 1 DAY BEFORE INFUSION
     Route: 048
     Dates: start: 20231016, end: 20231018
  14. EBASTINE [Concomitant]
     Active Substance: EBASTINE
     Dosage: DOSE FREQUENCY: 2 TIMES A DAY FOR 3 DAYS, START 1 DAY BEFORE INFUSION
     Route: 048
     Dates: start: 20231029, end: 20231031
  15. EBASTINE [Concomitant]
     Active Substance: EBASTINE
     Dosage: DOSE FREQUENCY: 2 TIMES A DAY FOR 3 DAYS, START 1 DAY BEFORE INFUSION
     Route: 048
     Dates: start: 20240414, end: 20240416
  16. EBASTINE [Concomitant]
     Active Substance: EBASTINE
     Dosage: DOSE FREQUENCY: 2 TIMES A DAY FOR 3 DAYS, START 1 DAY BEFORE INFUSION
     Route: 048
     Dates: start: 20241106, end: 20241108

REACTIONS (1)
  - COVID-19 [Recovered/Resolved]

NARRATIVE: CASE EVENT DATE: 20241001
